FAERS Safety Report 7250265-6 (Version None)
Quarter: 2011Q1

REPORT INFORMATION
  Report Type: 
  Country: None (occurrence: None)
  Receive Date: 20110118
  Receipt Date: 20101221
  Transmission Date: 20110831
  Serious: Yes (Hospitalization)
  Sender: FDA-Public Use
  Company Number: 002299

PATIENT
  Sex: Female

DRUGS (20)
  1. SELEGILINE HYDROCHLORIDE [Concomitant]
  2. GALENIC /HYALURONATE SODIUM/ACETYLCHOLIN [Concomitant]
  3. DOMPERIDONE [Concomitant]
  4. NIFEDIPINE [Concomitant]
  5. SENNA ALEXANDRINA EXTRACT [Concomitant]
  6. OLMESARTAN MEDOXOMIL [Concomitant]
  7. LEVODOPA [Concomitant]
  8. ROTIGOTINE (ROTIGOTINE) [Suspect]
     Indication: PARKINSON'S DISEASE
     Dosage: SEE IMAGE
     Route: 062
     Dates: start: 20091130, end: 20091208
  9. ROTIGOTINE (ROTIGOTINE) [Suspect]
     Indication: PARKINSON'S DISEASE
     Dosage: SEE IMAGE
     Route: 062
     Dates: start: 20091221, end: 20091228
  10. ROTIGOTINE (ROTIGOTINE) [Suspect]
     Indication: PARKINSON'S DISEASE
     Dosage: SEE IMAGE
     Route: 062
     Dates: start: 20091214, end: 20091221
  11. ROTIGOTINE (ROTIGOTINE) [Suspect]
     Indication: PARKINSON'S DISEASE
     Dosage: SEE IMAGE
     Route: 062
     Dates: start: 20091228, end: 20091230
  12. ROTIGOTINE (ROTIGOTINE) [Suspect]
     Indication: PARKINSON'S DISEASE
     Dosage: SEE IMAGE
     Route: 062
     Dates: start: 20091208, end: 20091214
  13. ROTIGOTINE (ROTIGOTINE) [Suspect]
     Indication: PARKINSON'S DISEASE
     Dosage: SEE IMAGE
     Route: 062
     Dates: start: 20091230, end: 20100107
  14. MAGNESIUM OXIDE [Concomitant]
  15. SOLIFENACIN SUCCINATE [Concomitant]
  16. LANSOPRAZOLE [Concomitant]
  17. IRSOGLADINE MALEATE [Concomitant]
  18. LIDOCAINE HYDROCHLORIDE [Concomitant]
  19. MOSAPRIDE CITRATE [Concomitant]
  20. LIDOCAINE [Concomitant]

REACTIONS (9)
  - LOSS OF CONSCIOUSNESS [None]
  - PAIN [None]
  - BALANCE DISORDER [None]
  - NAUSEA [None]
  - VOMITING [None]
  - WALKING AID USER [None]
  - FALL [None]
  - GAIT DISTURBANCE [None]
  - SPINAL COMPRESSION FRACTURE [None]
